FAERS Safety Report 4553124-2 (Version None)
Quarter: 2005Q1

REPORT INFORMATION
  Report Type: 
  Country: None (occurrence: None)
  Receive Date: 20050114
  Receipt Date: 20050104
  Transmission Date: 20050727
  Serious: Yes (Death)
  Sender: FDA-Public Use
  Company Number: US-JNJFOC-20041008588

PATIENT
  Sex: Male
  Weight: 74.84 kg

DRUGS (1)
  1. HALDOL [Suspect]
     Indication: RESTLESSNESS
     Dosage: INITAL DOSE WAS 4 MG. (GIVEN A TOTAL OF 12 MG OVER A PERIOD OF 5.75 HRS)
     Route: 042
     Dates: start: 20030623, end: 20030623

REACTIONS (7)
  - AGITATION [None]
  - BLOOD PRESSURE INCREASED [None]
  - CARDIO-RESPIRATORY ARREST [None]
  - HYPERTENSION [None]
  - IRRITABILITY [None]
  - MEDICATION ERROR [None]
  - OVERDOSE [None]
